FAERS Safety Report 15661438 (Version 1)
Quarter: 2018Q4

REPORT INFORMATION
  Report Type: Spontaneous
  Country: US (occurrence: US)
  Receive Date: 20181127
  Receipt Date: 20181127
  Transmission Date: 20190205
  Serious: No
  Sender: FDA-Public Use
  Company Number: US-BAYER-2018-217189

PATIENT
  Sex: Female

DRUGS (1)
  1. CLARITIN [Suspect]
     Active Substance: LORATADINE
     Indication: DRUG HYPERSENSITIVITY
     Dosage: UNK
     Route: 065

REACTIONS (5)
  - Off label use [Unknown]
  - Nausea [Unknown]
  - Product use in unapproved indication [Unknown]
  - Dizziness [Unknown]
  - Product use complaint [None]
